FAERS Safety Report 6528120-6 (Version None)
Quarter: 2010Q1

REPORT INFORMATION
  Report Type: 
  Country: None (occurrence: None)
  Receive Date: 20100106
  Receipt Date: 20091229
  Transmission Date: 20100710
  Serious: Yes (Other)
  Sender: FDA-Public Use
  Company Number: US-PFIZER INC-2010000372

PATIENT
  Sex: Female
  Weight: 67.131 kg

DRUGS (9)
  1. LIPITOR [Suspect]
     Indication: BLOOD CHOLESTEROL INCREASED
     Dosage: 80 MG, UNK
     Route: 048
     Dates: start: 19990101, end: 20090101
  2. LIPITOR [Suspect]
     Indication: LOW DENSITY LIPOPROTEIN
  3. ATENOLOL [Concomitant]
     Indication: HYPERTENSION
  4. HYZAAR [Concomitant]
     Indication: HYPERTENSION
     Dosage: FREQUENCY: 2X DAILY,
  5. NIFEDIPINE [Concomitant]
     Indication: HYPERTENSION
  6. ACETYLSALICYLIC ACID [Concomitant]
  7. CALCIUM CITRATE [Concomitant]
     Indication: OSTEOPOROSIS PROPHYLAXIS
  8. VITAMINS [Concomitant]
  9. VITAMIN D [Concomitant]

REACTIONS (2)
  - MUSCULAR WEAKNESS [None]
  - RENAL DISORDER [None]
